FAERS Safety Report 9036609 (Version 1)
Quarter: 2013Q1

REPORT INFORMATION
  Report Type: Report from Study
  Country: US (occurrence: US)
  Receive Date: 20130129
  Receipt Date: 20130129
  Transmission Date: 20140127
  Serious: No
  Sender: FDA-Public Use
  Company Number: US-ABBOTT-12P-163-0892589-00

PATIENT
  Age: 13 Year
  Sex: Male

DRUGS (4)
  1. HUMIRA [Suspect]
     Indication: CROHN^S DISEASE
     Dates: start: 20111103
  2. ASACOL [Concomitant]
     Indication: CROHN^S DISEASE
     Route: 048
  3. OMEPRAZOLE [Concomitant]
     Indication: GASTROOESOPHAGEAL REFLUX DISEASE
     Route: 048
  4. LEVOTHYROXINE [Concomitant]
     Indication: HYPOTHYROIDISM
     Route: 048

REACTIONS (6)
  - Rectal discharge [Unknown]
  - Diarrhoea [Unknown]
  - Haematochezia [Unknown]
  - Infection [Unknown]
  - Nausea [Not Recovered/Not Resolved]
  - Vomiting [Unknown]
